FAERS Safety Report 17420340 (Version 3)
Quarter: 2020Q1

REPORT INFORMATION
  Report Type: Spontaneous
  Country: US (occurrence: US)
  Receive Date: 20200214
  Receipt Date: 20200309
  Transmission Date: 20200409
  Serious: No
  Sender: FDA-Public Use
  Company Number: US-VERTEX PHARMACEUTICALS-2020-001016

PATIENT
  Age: 44 Year
  Sex: Male
  Weight: 78 kg

DRUGS (1)
  1. TRIKAFTA [Suspect]
     Active Substance: ELEXACAFTOR\IVACAFTOR\TEZACAFTOR
     Indication: CYSTIC FIBROSIS
     Dosage: 100 MG ELAXACAFTOR/50 MG TEZACAFTOR/75 MG IVACAFTOR) AM AND 1 TABLET (150 MG IVACAFTOR)PM
     Route: 048
     Dates: start: 20191227

REACTIONS (7)
  - Oropharyngeal pain [Not Recovered/Not Resolved]
  - Cough [Recovering/Resolving]
  - Ocular hyperaemia [Not Recovered/Not Resolved]
  - Eye pruritus [Recovered/Resolved]
  - Dry eye [Not Recovered/Not Resolved]
  - Abdominal pain upper [Unknown]
  - Headache [Unknown]

NARRATIVE: CASE EVENT DATE: 20191227
